FAERS Safety Report 15485835 (Version 3)
Quarter: 2018Q4

REPORT INFORMATION
  Report Type: Spontaneous
  Country: AT (occurrence: AT)
  Receive Date: 20181010
  Receipt Date: 20181120
  Transmission Date: 20190205
  Serious: Yes (Hospitalization)
  Sender: FDA-Public Use
  Company Number: AT-BIOGEN-2018BI00643834

PATIENT

DRUGS (4)
  1. VITAMIN D [Concomitant]
     Active Substance: CHOLECALCIFEROL
     Indication: PRODUCT USED FOR UNKNOWN INDICATION
     Route: 065
  2. SPINRAZA [Suspect]
     Active Substance: NUSINERSEN
     Indication: SPINAL MUSCULAR ATROPHY
     Route: 037
     Dates: start: 20180926
  3. SPINRAZA [Suspect]
     Active Substance: NUSINERSEN
     Dosage: ONLY 4.1 ML WAS ASPIRATED INSTEAD OF 5ML; THIRD ADMINISTRATION
     Route: 037
  4. SPINRAZA [Suspect]
     Active Substance: NUSINERSEN
     Dosage: BOLUS OVER 5 MINUTES; SECOND INJECTION
     Route: 065
     Dates: start: 20181010

REACTIONS (2)
  - Underdose [Unknown]
  - Intracranial pressure increased [Unknown]
